FAERS Safety Report 11918776 (Version 1)
Quarter: 2016Q1

REPORT INFORMATION
  Report Type: Spontaneous
  Country: US (occurrence: US)
  Receive Date: 20160115
  Receipt Date: 20160115
  Transmission Date: 20160526
  Serious: No
  Sender: FDA-Public Use
  Company Number: US-JNJFOC-20151211879

PATIENT
  Sex: Female
  Weight: 43.55 kg

DRUGS (1)
  1. GENERIC FENTANYL [Suspect]
     Active Substance: FENTANYL
     Indication: PAIN
     Route: 062
     Dates: start: 2006, end: 2006

REACTIONS (1)
  - Skin disorder [Unknown]

NARRATIVE: CASE EVENT DATE: 2006
